FAERS Safety Report 19156395 (Version 1)
Quarter: 2021Q2

REPORT INFORMATION
  Report Type: Report from Study
  Country: None (occurrence: US)
  Receive Date: 20210420
  Receipt Date: 20210420
  Transmission Date: 20210717
  Serious: Yes (Disabling)
  Sender: FDA-Public Use
  Company Number: US-ABBVIE-21K-163-3860485-00

PATIENT
  Sex: Male

DRUGS (1)
  1. SKYRIZI [Suspect]
     Active Substance: RISANKIZUMAB-RZAA
     Indication: PSORIASIS
     Route: 058

REACTIONS (5)
  - Depression [Not Recovered/Not Resolved]
  - Joint effusion [Recovering/Resolving]
  - Psoriasis [Recovered/Resolved]
  - Psoriatic arthropathy [Unknown]
  - Post-traumatic stress disorder [Not Recovered/Not Resolved]
